FAERS Safety Report 5240522-7 (Version None)
Quarter: 2007Q1

REPORT INFORMATION
  Report Type: 
  Country: None (occurrence: None)
  Receive Date: 20070219
  Receipt Date: 20070206
  Transmission Date: 20070707
  Serious: Yes (Hospitalization, Other)
  Sender: FDA-Public Use
  Company Number: DE-AMGEN-UK031838

PATIENT
  Sex: Male
  Weight: 73 kg

DRUGS (8)
  1. NEUPOGEN [Suspect]
     Indication: PRE-EXISTING DISEASE
     Route: 058
     Dates: start: 20030221, end: 20030223
  2. ASPIRIN [Concomitant]
  3. CLOPIDOGREL [Concomitant]
  4. METOPROLOL SUCCINATE [Concomitant]
  5. RAMIPRIL [Concomitant]
  6. SIMVASTATIN [Concomitant]
  7. PANTOPRAZOLE SODIUM [Concomitant]
  8. FRAXIPARIN [Concomitant]

REACTIONS (5)
  - BONE PAIN [None]
  - CORONARY ARTERY RESTENOSIS [None]
  - MALAISE [None]
  - MYALGIA [None]
  - TOOTHACHE [None]
